FAERS Safety Report 7991028-3 (Version None)
Quarter: 2011Q4

REPORT INFORMATION
  Report Type: 
  Country: None (occurrence: None)
  Receive Date: 20111219
  Receipt Date: 20111214
  Transmission Date: 20120403
  Serious: No
  Sender: FDA-Public Use
  Company Number: BR-ROCHE-1019327

PATIENT
  Sex: Female
  Weight: 58 kg

DRUGS (2)
  1. BONIVA [Suspect]
     Indication: OSTEOPOROSIS
  2. BONIVA [Suspect]
     Indication: OSTEOPENIA
     Route: 048

REACTIONS (1)
  - TREMOR [None]
